FAERS Safety Report 25074135 (Version 1)
Quarter: 2025Q1

REPORT INFORMATION
  Report Type: Spontaneous
  Country: BG (occurrence: BG)
  Receive Date: 20250313
  Receipt Date: 20250313
  Transmission Date: 20250408
  Serious: Yes (Hospitalization, Other)
  Sender: NOVARTIS
  Company Number: BG-SANDOZ-SDZ2025BG013927

PATIENT
  Age: 64 Year
  Sex: Female

DRUGS (10)
  1. VALSARTAN [Suspect]
     Active Substance: VALSARTAN
     Indication: Hypertension
     Route: 065
     Dates: start: 202304
  2. LORATADINE [Suspect]
     Active Substance: LORATADINE
     Indication: Hypertension
     Dosage: 5 MG, QD
     Route: 065
  3. ROSUVASTATIN [Suspect]
     Active Substance: ROSUVASTATIN
     Indication: Hypertension
     Dosage: 10 MG, QD (ONCE IN THE EVENING)
     Route: 065
     Dates: start: 202304
  4. BISOPROLOL FUMARATE [Suspect]
     Active Substance: BISOPROLOL FUMARATE
     Indication: Hypertension
     Route: 065
     Dates: start: 202304
  5. CLOPIDOGREL [Suspect]
     Active Substance: CLOPIDOGREL BISULFATE
     Indication: Hypertension
     Dosage: 75 MG, QD (ONCE IN THE MORNING)
     Route: 065
     Dates: start: 202304
  6. BETAHISTINE [Suspect]
     Active Substance: BETAHISTINE
     Indication: Hypertension
     Dosage: 48 MG, QD (24 MG, BID (TWICE DAILY), ONE IN THE MORNING AND ONE IN THE EVENING)
     Route: 065
     Dates: start: 202304
  7. SPIRONOLACTONE [Suspect]
     Active Substance: SPIRONOLACTONE
     Indication: Hypertension
     Dosage: 25 MG, QD ( ONCE IN THE MORNING)
     Route: 065
     Dates: start: 202304
  8. CHLORTHALIDONE [Suspect]
     Active Substance: CHLORTHALIDONE
     Indication: Hypertension
     Dosage: 25 MG, QD (ONCE IN THE MORNING)
     Route: 065
     Dates: start: 202304
  9. CLOBETASOL PROPIONATE [Suspect]
     Active Substance: CLOBETASOL PROPIONATE
     Indication: Hypertension
     Route: 050
  10. MOXONIDINE [Suspect]
     Active Substance: MOXONIDINE
     Indication: Hypertension
     Dosage: 0.4 MG, QD (0.2 MG, BID)
     Route: 065

REACTIONS (2)
  - Lichen planus [Recovered/Resolved]
  - Lichen planopilaris [Recovered/Resolved]
